FAERS Safety Report 5503014-3 (Version None)
Quarter: 2007Q4

REPORT INFORMATION
  Report Type: 
  Country: None (occurrence: None)
  Receive Date: 20071029
  Receipt Date: 20071029
  Transmission Date: 20080405
  Serious: No
  Sender: FDA-Public Use
  Company Number: None

PATIENT
  Age: 81 Year
  Sex: Female
  Weight: 48.0813 kg

DRUGS (2)
  1. MORPHINE SULFATE [Suspect]
     Indication: BREAKTHROUGH PAIN
     Dosage: 2.5 MG Q4HRS PRN PO
     Route: 048
     Dates: start: 20070927, end: 20071026
  2. FENTANYL [Suspect]
     Indication: PAIN
     Dosage: 50 MCG/ML Q72HRS TRANSDERMAL
     Route: 062
     Dates: start: 20071007, end: 20071021

REACTIONS (2)
  - LOSS OF CONSCIOUSNESS [None]
  - RESPIRATORY DEPRESSION [None]
